FAERS Safety Report 7565599-5 (Version None)
Quarter: 2011Q2

REPORT INFORMATION
  Report Type: 
  Country: None (occurrence: None)
  Receive Date: 20110623
  Receipt Date: 20110614
  Transmission Date: 20111010
  Serious: Yes (Hospitalization)
  Sender: FDA-Public Use
  Company Number: DE-AMGEN-DEUCT2011007509

PATIENT
  Age: 82 Year
  Sex: Female
  Weight: 67 kg

DRUGS (10)
  1. METHOTREXATE SODIUM [Suspect]
     Indication: RHEUMATOID ARTHRITIS
     Dosage: 15 MG, WEEKLY
     Route: 058
     Dates: end: 20100701
  2. ETANERCEPT [Suspect]
     Indication: RHEUMATOID ARTHRITIS
     Dosage: 50 MG, QWK
     Dates: start: 20100501, end: 20100701
  3. FOLIC ACID [Concomitant]
     Dosage: 5 MG, WEEKLY
     Route: 048
  4. VALORON                            /00205402/ [Concomitant]
     Dosage: 50 MG, 2X/DAY
     Dates: start: 20100101
  5. PREDNISOLONE [Concomitant]
     Dosage: 5 MG, 1X/DAY
  6. BISOPROLOL [Concomitant]
     Dosage: 2.5 MG, 2X/DAY
  7. PENTAERYTHRITOL TETRANITRATE [Concomitant]
     Dosage: 80 MG, 2X/DAY
  8. VALORON                            /00205402/ [Concomitant]
     Dosage: 100 MG, 2X/DAY
     Dates: start: 20100701
  9. TORSEMIDE [Concomitant]
     Dosage: 10 MG, 1X/DAY
  10. XIPAMIDE [Concomitant]
     Dosage: 40 MG, 1X/DAY

REACTIONS (2)
  - DEEP VEIN THROMBOSIS [None]
  - ANAEMIA [None]
